FAERS Safety Report 6054913 (Version 3)
Quarter: 2016Q3

REPORT INFORMATION
  Report Type: Spontaneous
  Country: DE (occurrence: DE)
  Receive Date: 20060530
  Receipt Date: 20160822
  Transmission Date: 20161109
  Serious: Yes (Other)
  Sender: FDA-Public Use
  Company Number: DE-BRISTOL-MYERS SQUIBB COMPANY-12798591

PATIENT
  Age: 31 Year
  Sex: Female
  Weight: 51 kg

DRUGS (4)
  1. VIDEX EC [Suspect]
     Active Substance: DIDANOSINE
     Indication: HIV INFECTION
     Dosage: 250 MG, QD
     Route: 048
     Dates: start: 20021219
  2. VIRAMUNE [Suspect]
     Active Substance: NEVIRAPINE
     Indication: PRODUCT USED FOR UNKNOWN INDICATION
     Dosage: 400 MG, QD
     Route: 065
  3. VIREAD [Suspect]
     Active Substance: TENOFOVIR DISOPROXIL FUMARATE
     Indication: HIV INFECTION
     Dosage: 300 MG, QD
     Route: 048
     Dates: start: 20021219
  4. REYATAZ [Suspect]
     Active Substance: ATAZANAVIR SULFATE
     Indication: HIV INFECTION
     Dosage: 400 MG, QD
     Route: 048
     Dates: start: 20030707

REACTIONS (5)
  - Live birth [Unknown]
  - Pre-eclampsia [Recovered/Resolved]
  - Twin pregnancy [Recovered/Resolved]
  - Premature delivery [Unknown]
  - Caesarean section [Unknown]

NARRATIVE: CASE EVENT DATE: 20050409
